FAERS Safety Report 16069658 (Version 1)
Quarter: 2019Q1

REPORT INFORMATION
  Report Type: Spontaneous
  Country: NO (occurrence: NO)
  Receive Date: 20190314
  Receipt Date: 20190314
  Transmission Date: 20190418
  Serious: Yes (Other)
  Sender: FDA-Public Use
  Company Number: NO-UCBSA-2019010491

PATIENT
  Age: 67 Year
  Sex: Female

DRUGS (1)
  1. CIMZIA [Suspect]
     Active Substance: CERTOLIZUMAB PEGOL
     Indication: RHEUMATOID ARTHRITIS
     Dosage: 200 MG, EV 2 WEEKS(QOW)
     Route: 058
     Dates: start: 20130129, end: 20180914

REACTIONS (1)
  - Gastrointestinal melanoma [Recovered/Resolved with Sequelae]

NARRATIVE: CASE EVENT DATE: 201809
